FAERS Safety Report 5626914-2 (Version None)
Quarter: 2008Q1

REPORT INFORMATION
  Report Type: 
  Country: None (occurrence: None)
  Receive Date: 20080212
  Receipt Date: 20080130
  Transmission Date: 20080703
  Serious: Yes (Hospitalization, Disabling)
  Sender: FDA-Public Use
  Company Number: 231233J07USA

PATIENT
  Age: 44 Year
  Sex: Female

DRUGS (5)
  1. REBIF [Suspect]
     Indication: MULTIPLE SCLEROSIS
     Dosage: 44 MCG, 3 IN 1 WEEKS, SUBCUTANEOUS; 22 MCG, 3 IN 1 WEEKS, SUBCUTANEOUS
     Route: 058
     Dates: start: 20070831, end: 20071101
  2. OXYCONTIN [Concomitant]
  3. ZANAFLEX [Concomitant]
  4. RITALIN [Concomitant]
  5. DILANTIN [Concomitant]

REACTIONS (3)
  - HAEMANGIOMA [None]
  - HEADACHE [None]
  - STATUS EPILEPTICUS [None]
